FAERS Safety Report 18101522 (Version 2)
Quarter: 2022Q3

REPORT INFORMATION
  Report Type: Report from Study
  Country: CA (occurrence: CA)
  Receive Date: 20200801
  Receipt Date: 20220824
  Transmission Date: 20221027
  Serious: Yes (Other)
  Sender: FDA-Public Use
  Company Number: CA-BOEHRINGERINGELHEIM-2020-BI-038090

PATIENT
  Age: 49 Year
  Sex: Male

DRUGS (1)
  1. OFEV [Suspect]
     Active Substance: NINTEDANIB
     Indication: Idiopathic pulmonary fibrosis
     Route: 048
     Dates: start: 20170707

REACTIONS (3)
  - Lung transplant [Unknown]
  - Weight decreased [Unknown]
  - Body mass index decreased [Unknown]

NARRATIVE: CASE EVENT DATE: 20200101
